FAERS Safety Report 18049894 (Version 1)
Quarter: 2020Q3

REPORT INFORMATION
  Report Type: Spontaneous
  Country: CN (occurrence: CN)
  Receive Date: 20200721
  Receipt Date: 20200721
  Transmission Date: 20201103
  Serious: Yes (Hospitalization)
  Sender: FDA-Public Use
  Company Number: CN-PFIZER INC-2020275581

PATIENT
  Age: 37 Year
  Sex: Female
  Weight: 55 kg

DRUGS (2)
  1. QI WEI [Suspect]
     Active Substance: QUETIAPINE FUMARATE
     Indication: SUICIDE ATTEMPT
     Dosage: 10 DF, 1X/DAY
     Route: 048
     Dates: start: 20200709, end: 20200709
  2. VENLAFAXINE HCL [Suspect]
     Active Substance: VENLAFAXINE HYDROCHLORIDE
     Indication: SUICIDE ATTEMPT
     Dosage: 10 DF, 1X/DAY
     Route: 048
     Dates: start: 20200709, end: 20200709

REACTIONS (5)
  - Toxicity to various agents [Recovering/Resolving]
  - Coma [Recovering/Resolving]
  - White blood cell count decreased [Recovering/Resolving]
  - Intentional overdose [Unknown]
  - Fatigue [Unknown]

NARRATIVE: CASE EVENT DATE: 20200709
